FAERS Safety Report 8183891-0 (Version None)
Quarter: 2012Q1

REPORT INFORMATION
  Report Type: 
  Country: None (occurrence: None)
  Receive Date: 20120305
  Receipt Date: 20120229
  Transmission Date: 20120608
  Serious: Yes (Hospitalization, Other)
  Sender: FDA-Public Use
  Company Number: TW-PFIZER INC-2012051438

PATIENT
  Age: 32 Year
  Sex: Female

DRUGS (4)
  1. POVIDONE IODINE [Suspect]
     Dosage: UNK
     Route: 061
  2. ACETAMINOPHEN [Concomitant]
     Dosage: UNK
  3. MORPHINE SULFATE [Suspect]
     Indication: PAIN
     Dosage: UNK
     Route: 008
  4. BUPIVACAINE HCL [Suspect]
     Indication: PAIN
     Dosage: UNK
     Route: 008

REACTIONS (15)
  - BACTERIAL INFECTION [None]
  - STAPHYLOCOCCAL ABSCESS [None]
  - INFLAMMATION [None]
  - PURULENT DISCHARGE [None]
  - ERYTHEMA [None]
  - C-REACTIVE PROTEIN INCREASED [None]
  - PYREXIA [None]
  - ABSCESS [None]
  - HAEMORRHAGE [None]
  - MALAISE [None]
  - BACK PAIN [None]
  - WHITE BLOOD CELL COUNT INCREASED [None]
  - HEADACHE [None]
  - FISTULA [None]
  - DRUG EFFECT DECREASED [None]
